FAERS Safety Report 9301996 (Version 6)
Quarter: 2016Q2

REPORT INFORMATION
  Report Type: Spontaneous
  Country: US (occurrence: US)
  Receive Date: 20130521
  Receipt Date: 20160519
  Transmission Date: 20160815
  Serious: Yes (Hospitalization, Other)
  Sender: FDA-Public Use
  Company Number: US-009507513-1305USA011632

PATIENT
  Sex: Male
  Weight: 106.12 kg

DRUGS (1)
  1. PROPECIA [Suspect]
     Active Substance: FINASTERIDE
     Indication: ANDROGENETIC ALOPECIA
     Dosage: 1 MG, QD
     Route: 048
     Dates: start: 20030612, end: 200402

REACTIONS (44)
  - Hypothyroidism [Unknown]
  - Anogenital warts [Unknown]
  - Erectile dysfunction [Not Recovered/Not Resolved]
  - Depression [Not Recovered/Not Resolved]
  - Protein total decreased [Not Recovered/Not Resolved]
  - Blood glucose increased [Unknown]
  - Concussion [Unknown]
  - Drug abuse [Unknown]
  - Suicidal ideation [Unknown]
  - Spinal column injury [Unknown]
  - Back pain [Not Recovered/Not Resolved]
  - Urinary tract disorder [Unknown]
  - Sexual dysfunction [Not Recovered/Not Resolved]
  - Dry skin [Unknown]
  - Kyphosis [Unknown]
  - Head injury [Unknown]
  - Treatment noncompliance [Not Recovered/Not Resolved]
  - Constipation [Unknown]
  - Urethral obstruction [Unknown]
  - Libido decreased [Unknown]
  - Insomnia [Not Recovered/Not Resolved]
  - Headache [Unknown]
  - Pollakiuria [Unknown]
  - Hydronephrosis [Unknown]
  - Tachyphrenia [Unknown]
  - Stress [Unknown]
  - Bipolar disorder [Not Recovered/Not Resolved]
  - Anxiety [Not Recovered/Not Resolved]
  - Hypogonadism [Unknown]
  - Hyperlipidaemia [Unknown]
  - Fatigue [Unknown]
  - Palpitations [Unknown]
  - Substance use [Not Recovered/Not Resolved]
  - Confusional state [Unknown]
  - Attention deficit/hyperactivity disorder [Unknown]
  - Mood swings [Unknown]
  - Mania [Not Recovered/Not Resolved]
  - Panic attack [Unknown]
  - Bronchitis [Unknown]
  - Bladder dysfunction [Not Recovered/Not Resolved]
  - Blood thyroid stimulating hormone increased [Not Recovered/Not Resolved]
  - Urinary tract obstruction [Unknown]
  - Asthma [Unknown]
  - Scoliosis [Unknown]

NARRATIVE: CASE EVENT DATE: 200311
